FAERS Safety Report 7709658-2 (Version None)
Quarter: 2011Q3

REPORT INFORMATION
  Report Type: 
  Country: None (occurrence: None)
  Receive Date: 20110825
  Receipt Date: 20110818
  Transmission Date: 20111222
  Serious: Yes (Other)
  Sender: FDA-Public Use
  Company Number: US-GLAXOSMITHKLINE-A0941540A

PATIENT
  Age: 84 Year
  Sex: Male

DRUGS (11)
  1. NAMENDA [Concomitant]
  2. OMEPRAZOLE [Concomitant]
  3. COUMADIN [Concomitant]
  4. ZETIA [Concomitant]
  5. ASPIRIN [Concomitant]
  6. ALLEGRA [Suspect]
     Indication: PRODUCT USED FOR UNKNOWN INDICATION
     Route: 065
  7. LIPITOR [Concomitant]
  8. TYLENOL-500 [Concomitant]
  9. DIGOXIN [Suspect]
     Indication: ATRIAL FIBRILLATION
     Dosage: 125MCG PER DAY
     Route: 048
  10. ATENOLOL [Concomitant]
  11. ARICEPT [Concomitant]

REACTIONS (7)
  - NAUSEA [None]
  - DIARRHOEA [None]
  - DECREASED APPETITE [None]
  - DRUG INTERACTION [None]
  - DEPRESSION [None]
  - TOXICITY TO VARIOUS AGENTS [None]
  - RESTLESSNESS [None]
